FAERS Safety Report 16538837 (Version 2)
Quarter: 2019Q3

REPORT INFORMATION
  Report Type: Spontaneous
  Country: DZ (occurrence: DZ)
  Receive Date: 20190708
  Receipt Date: 20190726
  Transmission Date: 20191004
  Serious: Yes (Other)
  Sender: FDA-Public Use
  Company Number: DZ-ROCHE-2310848

PATIENT
  Sex: Female

DRUGS (8)
  1. BOSENTAN. [Concomitant]
     Active Substance: BOSENTAN
     Indication: ULCER
     Route: 065
     Dates: start: 201903, end: 20190428
  2. ADALATE [Concomitant]
     Active Substance: NIFEDIPINE
     Indication: RAYNAUD^S PHENOMENON
     Route: 065
     Dates: end: 20190428
  3. METHOTREXATE. [Concomitant]
     Active Substance: METHOTREXATE
     Route: 048
     Dates: start: 20180828
  4. HYDROXYCHLOROQUINE [Concomitant]
     Active Substance: HYDROXYCHLOROQUINE
  5. MABTHERA [Suspect]
     Active Substance: RITUXIMAB
     Indication: SCLERODERMA
     Dosage: (375X4) MG/M2
     Route: 065
  6. MABTHERA [Suspect]
     Active Substance: RITUXIMAB
     Dosage: LAST RITUXIMAB DOSE RECEIVED ON 27/MAR/2019 (1 G; DAY 14 RANGE)
     Route: 065
     Dates: start: 20190312
  7. METHOTREXATE. [Concomitant]
     Active Substance: METHOTREXATE
     Route: 030
     Dates: start: 20190117
  8. PLAQUENIL [Concomitant]
     Active Substance: HYDROXYCHLOROQUINE SULFATE

REACTIONS (4)
  - Maternal exposure during pregnancy [Unknown]
  - Intentional product use issue [Unknown]
  - Abortion spontaneous [Unknown]
  - Off label use [Unknown]
